FAERS Safety Report 4544886-9 (Version None)
Quarter: 2005Q1

REPORT INFORMATION
  Report Type: 
  Country: None (occurrence: None)
  Receive Date: 20050104
  Receipt Date: 20041222
  Transmission Date: 20050727
  Serious: Yes (Life-Threatening, Hospitalization)
  Sender: FDA-Public Use
  Company Number: 25412

PATIENT
  Age: 53 Year
  Sex: Male

DRUGS (6)
  1. FLECAINE            (FLECAINIDE ACETIDE) [Suspect]
     Indication: ATRIAL FIBRILLATION
     Dosage: 300 MG (150 MG, 2 IN 1 DAY(S)) ORAL : 150 MG (50 MG, 3 IN 1 DAY(S))
     Route: 048
     Dates: start: 20040830, end: 20041001
  2. FLECAINE            (FLECAINIDE ACETIDE) [Suspect]
     Indication: ATRIAL FLUTTER
     Dosage: 300 MG (150 MG, 2 IN 1 DAY(S)) ORAL : 150 MG (50 MG, 3 IN 1 DAY(S))
     Route: 048
     Dates: start: 20040830, end: 20041001
  3. FLECAINE            (FLECAINIDE ACETIDE) [Suspect]
     Indication: ATRIAL FIBRILLATION
     Dosage: 300 MG (150 MG, 2 IN 1 DAY(S)) ORAL : 150 MG (50 MG, 3 IN 1 DAY(S))
     Route: 048
     Dates: start: 20041020
  4. FLECAINE            (FLECAINIDE ACETIDE) [Suspect]
     Indication: ATRIAL FLUTTER
     Dosage: 300 MG (150 MG, 2 IN 1 DAY(S)) ORAL : 150 MG (50 MG, 3 IN 1 DAY(S))
     Route: 048
     Dates: start: 20041020
  5. DIGOXIN [Concomitant]
  6. PREVISCAN             (FLUINDIONE) [Concomitant]

REACTIONS (7)
  - ELECTROCARDIOGRAM QRS COMPLEX PROLONGED [None]
  - FEELING ABNORMAL [None]
  - MALAISE [None]
  - OVERDOSE [None]
  - PALPITATIONS [None]
  - SYNCOPE [None]
  - VENTRICULAR TACHYCARDIA [None]
